FAERS Safety Report 16841697 (Version 1)
Quarter: 2019Q3

REPORT INFORMATION
  Report Type: Spontaneous
  Country: CO (occurrence: CO)
  Receive Date: 20190923
  Receipt Date: 20190923
  Transmission Date: 20191005
  Serious: Yes (Hospitalization)
  Sender: FDA-Public Use
  Company Number: CO-BIOMARINAP-CO-2019-125809

PATIENT

DRUGS (1)
  1. NAGLAZYME [Suspect]
     Active Substance: GALSULFASE
     Indication: MUCOPOLYSACCHARIDOSIS VI
     Dosage: 25 MILLIGRAM
     Route: 042
     Dates: start: 20101020

REACTIONS (2)
  - Abdominal pain [Unknown]
  - Oxygen saturation decreased [Unknown]

NARRATIVE: CASE EVENT DATE: 20190915
